FAERS Safety Report 6868290-3 (Version None)
Quarter: 2010Q3

REPORT INFORMATION
  Report Type: 
  Country: None (occurrence: None)
  Receive Date: 20100722
  Receipt Date: 20080521
  Transmission Date: 20110219
  Serious: Yes (Hospitalization, Other)
  Sender: FDA-Public Use
  Company Number: US-PFIZER INC-2008044214

PATIENT
  Age: 28 Year
  Sex: Male

DRUGS (2)
  1. CHANTIX [Suspect]
  2. BUPRENORPHINE HCL AND NALOXONE HCL [Concomitant]

REACTIONS (1)
  - CONVULSION [None]
